FAERS Safety Report 4497652-7 (Version None)
Quarter: 2004Q4

REPORT INFORMATION
  Report Type: 
  Country: None (occurrence: None)
  Receive Date: 20041103
  Receipt Date: 20041021
  Transmission Date: 20050328
  Serious: Yes (Hospitalization)
  Sender: FDA-Public Use
  Company Number: US-JNJFOC-20041006905

PATIENT
  Age: 75 Year
  Sex: Female

DRUGS (3)
  1. DURAGESIC [Suspect]
     Route: 062
     Dates: start: 20040901
  2. SINGULAIR [Concomitant]
     Indication: EMPHYSEMA
  3. CELEBREX [Concomitant]
     Route: 049

REACTIONS (4)
  - CHOLELITHIASIS [None]
  - DRY MOUTH [None]
  - HYPERHIDROSIS [None]
  - THERAPEUTIC RESPONSE DECREASED [None]
